FAERS Safety Report 26062899 (Version 2)
Quarter: 2025Q4

REPORT INFORMATION
  Report Type: Report from Study
  Country: US (occurrence: US)
  Receive Date: 20251119
  Receipt Date: 20251222
  Transmission Date: 20260117
  Serious: Yes (Other)
  Sender: ACADIA PHARMACEUTICALS
  Company Number: US-ACADIA PHARMACEUTICALS INC.-ACA-2025-PIM-012270

PATIENT
  Age: 64 Year
  Sex: Male

DRUGS (15)
  1. NUPLAZID [Suspect]
     Active Substance: PIMAVANSERIN TARTRATE
     Indication: Parkinson^s disease
     Dosage: 34 MILLIGRAM, QD
     Route: 048
     Dates: start: 20230823
  2. NUPLAZID [Suspect]
     Active Substance: PIMAVANSERIN TARTRATE
     Indication: Hallucination
  3. VYALEV [Concomitant]
     Active Substance: FOSCARBIDOPA\FOSLEVODOPA
  4. CARBIDOPA\LEVODOPA [Concomitant]
     Active Substance: CARBIDOPA\LEVODOPA
  5. VITAMIN C [Concomitant]
     Active Substance: ASCORBIC ACID
  6. NOURIANZ [Concomitant]
     Active Substance: ISTRADEFYLLINE
  7. VITAMINS [Concomitant]
     Active Substance: VITAMINS
  8. CHOLECALCIFEROL [Concomitant]
     Active Substance: CHOLECALCIFEROL
  9. BACLOFEN [Concomitant]
     Active Substance: BACLOFEN
  10. INBRIJA [Concomitant]
     Active Substance: LEVODOPA
  11. SERTRALINE [Concomitant]
     Active Substance: SERTRALINE HYDROCHLORIDE
  12. SEROQUEL [Concomitant]
     Active Substance: QUETIAPINE FUMARATE
  13. MINERALS\VITAMINS [Concomitant]
     Active Substance: MINERALS\VITAMINS
  14. VITAMIN D3 [Concomitant]
     Active Substance: CHOLECALCIFEROL
  15. DONEPEZIL [Concomitant]
     Active Substance: DONEPEZIL

REACTIONS (5)
  - Hallucination [Recovering/Resolving]
  - Malaise [Not Recovered/Not Resolved]
  - Bradykinesia [Not Recovered/Not Resolved]
  - Pain [Not Recovered/Not Resolved]
  - Mobility decreased [Not Recovered/Not Resolved]

NARRATIVE: CASE EVENT DATE: 20251102
